FAERS Safety Report 5700499-4 (Version None)
Quarter: 2008Q2

REPORT INFORMATION
  Report Type: 
  Country: None (occurrence: None)
  Receive Date: 20080408
  Receipt Date: 20080408
  Transmission Date: 20081010
  Serious: Yes (Death)
  Sender: FDA-Public Use
  Company Number: None

PATIENT
  Age: 90 Year
  Sex: Female
  Weight: 56.6996 kg

DRUGS (2)
  1. NITROFURANTOIN [Suspect]
     Indication: CYSTITIS
     Dates: start: 20050801, end: 20060301
  2. MACROBID [Suspect]
     Indication: CYSTITIS

REACTIONS (1)
  - HEPATIC FAILURE [None]
